FAERS Safety Report 16562370 (Version 1)
Quarter: 2019Q3

REPORT INFORMATION
  Report Type: Spontaneous
  Country: US (occurrence: US)
  Receive Date: 20190711
  Receipt Date: 20190711
  Transmission Date: 20191004
  Serious: No
  Sender: FDA-Public Use
  Company Number: US-EX USA HOLDINGS-EXHL20192306

PATIENT
  Age: 29 Year
  Sex: Female

DRUGS (2)
  1. PROBIOTIC [Concomitant]
     Active Substance: PROBIOTICS NOS
     Indication: INFECTION PROPHYLAXIS
     Dosage: UNKNOWN
     Route: 065
  2. NUVESSA [Suspect]
     Active Substance: METRONIDAZOLE
     Indication: BACTERIAL VAGINOSIS
     Dosage: FULL APPLICATOR ONCE AT BEDTIME
     Route: 067
     Dates: end: 20190626

REACTIONS (2)
  - Infection [Not Recovered/Not Resolved]
  - Fungal infection [Not Recovered/Not Resolved]

NARRATIVE: CASE EVENT DATE: 201906
